FAERS Safety Report 24399578 (Version 1)
Quarter: 2024Q4

REPORT INFORMATION
  Report Type: Spontaneous
  Country: GB (occurrence: GB)
  Receive Date: 20241005
  Receipt Date: 20241005
  Transmission Date: 20250115
  Serious: Yes (Hospitalization)
  Sender: ACCORD
  Company Number: GB-MLMSERVICE-20240916-PI195370-00158-1

PATIENT
  Age: 4 Decade
  Sex: Female

DRUGS (7)
  1. FLUOROURACIL [Suspect]
     Active Substance: FLUOROURACIL
     Indication: Signet-ring cell carcinoma
     Dosage: 3 CYCLES OF THE FOLFOX COURSE OF 2 CHEMOTHERAPY AGENTS FOR 6 MONTHS.
  2. OXALIPLATIN [Suspect]
     Active Substance: OXALIPLATIN
     Indication: Signet-ring cell carcinoma
     Dosage: 3 CYCLES OF THE FOLFOX COURSE OF 2 CHEMOTHERAPY AGENTS FOR 6 MONTHS.
  3. LEUCOVORIN [Suspect]
     Active Substance: LEUCOVORIN\LEUCOVORIN CALCIUM
     Indication: Adenocarcinoma of colon
     Dosage: 3 CYCLES OF THE FOLFOX COURSE OF 2 CHEMOTHERAPY AGENTS FOR 6 MONTHS.
  4. INFLIXIMAB [Concomitant]
     Active Substance: INFLIXIMAB
     Indication: Crohn^s disease
  5. LEUCOVORIN [Suspect]
     Active Substance: LEUCOVORIN\LEUCOVORIN CALCIUM
     Indication: Signet-ring cell carcinoma
     Dosage: 3 CYCLES OF THE FOLFOX COURSE OF 2 CHEMOTHERAPY AGENTS FOR 6 MONTHS.
  6. OXALIPLATIN [Suspect]
     Active Substance: OXALIPLATIN
     Indication: Adenocarcinoma of colon
     Dosage: 3 CYCLES OF THE FOLFOX COURSE OF 2 CHEMOTHERAPY AGENTS FOR 6 MONTHS.
  7. FLUOROURACIL [Suspect]
     Active Substance: FLUOROURACIL
     Indication: Adenocarcinoma of colon
     Dosage: 3 CYCLES OF THE FOLFOX COURSE OF 2 CHEMOTHERAPY AGENTS FOR 6 MONTHS.

REACTIONS (3)
  - Necrosis ischaemic [Unknown]
  - Abdominal adhesions [Unknown]
  - Intestinal ischaemia [Unknown]
